FAERS Safety Report 5534698-1 (Version None)
Quarter: 2007Q4

REPORT INFORMATION
  Report Type: 
  Country: None (occurrence: None)
  Receive Date: 20071205
  Receipt Date: 20071126
  Transmission Date: 20080405
  Serious: Yes (Other)
  Sender: FDA-Public Use
  Company Number: JP-ASTRAZENECA-2007AP00687

PATIENT
  Age: 22164 Day
  Sex: Female
  Weight: 59 kg

DRUGS (9)
  1. IRESSA [Suspect]
     Indication: NON-SMALL CELL LUNG CANCER STAGE IV
     Route: 048
     Dates: start: 20070115, end: 20070122
  2. IRESSA [Suspect]
     Indication: LUNG ADENOCARCINOMA
     Route: 048
     Dates: start: 20070115, end: 20070122
  3. PARAPLATIN [Suspect]
     Indication: LUNG ADENOCARCINOMA
     Dates: start: 20060517, end: 20070101
  4. TAXOL [Suspect]
     Indication: LUNG ADENOCARCINOMA
     Dates: start: 20060517, end: 20070101
  5. RADIOTHERAPY [Concomitant]
     Dosage: 30 GY RIGHT 6TH RIB AND LEFT PELVIS
     Dates: start: 20060904, end: 20060917
  6. RADIOTHERAPY [Concomitant]
     Dosage: 30 GY CERVICAL LYMPH NODES
     Dates: start: 20061122, end: 20061205
  7. RADIOTHERAPY [Concomitant]
     Dosage: 48 GY MEDIASTINUM CHEST
     Dates: start: 20070205, end: 20070309
  8. RADIOTHERAPY [Concomitant]
     Dosage: 36 GY CERVIX
     Dates: start: 20070206, end: 20070302
  9. RADIOTHERAPY [Concomitant]
     Dosage: 34 GY LEFT SUPRACLAVICULAR AREA
     Dates: start: 20070305, end: 20070329

REACTIONS (1)
  - PNEUMONIA [None]
